FAERS Safety Report 8604911-2 (Version None)
Quarter: 2012Q3

REPORT INFORMATION
  Report Type: 
  Country: None (occurrence: None)
  Receive Date: 20120820
  Receipt Date: 20120815
  Transmission Date: 20120928
  Serious: Yes (Other)
  Sender: FDA-Public Use
  Company Number: JP-JNJFOC-20120713462

PATIENT
  Age: 7 Decade
  Sex: Female

DRUGS (2)
  1. TRAMADOL HCL [Suspect]
     Indication: PAIN
     Dosage: 1DFX4 PER DAY
     Route: 048
  2. OXYCONTIN [Suspect]
     Indication: CANCER PAIN
     Route: 065
     Dates: start: 20120724

REACTIONS (2)
  - NEOPLASM MALIGNANT [None]
  - PAIN [None]
